FAERS Safety Report 13119578 (Version 1)
Quarter: 2017Q1

REPORT INFORMATION
  Report Type: Report from Study
  Country: US (occurrence: US)
  Receive Date: 20170116
  Receipt Date: 20170116
  Transmission Date: 20170428
  Serious: Yes (Life-Threatening, Hospitalization)
  Sender: FDA-Public Use
  Company Number: US-ROCHE-1878367

PATIENT
  Age: 58 Year
  Sex: Female

DRUGS (6)
  1. CEFTRIAXONE. [Suspect]
     Active Substance: CEFTRIAXONE
     Indication: PNEUMONIA
     Route: 042
     Dates: start: 20160608, end: 20160608
  2. ALBUTEROL. [Concomitant]
     Active Substance: ALBUTEROL
  3. SOMA [Concomitant]
     Active Substance: CARISOPRODOL
     Indication: FIBROMYALGIA
  4. ZITHROMAX [Concomitant]
     Active Substance: AZITHROMYCIN DIHYDRATE
  5. XANAX [Concomitant]
     Active Substance: ALPRAZOLAM
     Indication: PNEUMONIA
     Route: 065
     Dates: start: 20160608, end: 20160608
  6. HUMIRA [Suspect]
     Active Substance: ADALIMUMAB
     Indication: RHEUMATOID ARTHRITIS
     Dosage: 40MG/0.8ML (40 MG, SOLUTION FOR PRE-FILLED PEN)
     Route: 058
     Dates: start: 201504

REACTIONS (8)
  - Apnoea [Recovered/Resolved]
  - Skin discolouration [Recovered/Resolved]
  - Drug dose omission [Unknown]
  - Loss of consciousness [Recovered/Resolved]
  - Incoherent [Recovered/Resolved]
  - Anaphylactic reaction [Recovered/Resolved]
  - Amnesia [Not Recovered/Not Resolved]
  - Pneumonia [Recovered/Resolved]

NARRATIVE: CASE EVENT DATE: 201606
